FAERS Safety Report 24151789 (Version 1)
Quarter: 2024Q3

REPORT INFORMATION
  Report Type: Spontaneous
  Country: FR (occurrence: FR)
  Receive Date: 20240730
  Receipt Date: 20240730
  Transmission Date: 20241017
  Serious: Yes (Other)
  Sender: ACCORD
  Company Number: None

PATIENT
  Age: 68 Year
  Sex: Female
  Weight: 54 kg

DRUGS (11)
  1. CARBOPLATIN [Suspect]
     Active Substance: CARBOPLATIN
     Indication: Ovarian cancer
     Dates: start: 20220804, end: 20230103
  2. OLAPARIB [Suspect]
     Active Substance: OLAPARIB
     Indication: Ovarian cancer
     Dosage: LYNPARZA 100 MG, FILM-COATED TABLET
     Dates: start: 20240621, end: 20240705
  3. BEVACIZUMAB [Suspect]
     Active Substance: BEVACIZUMAB
     Indication: Ovarian cancer
     Dosage: 15MG/KG/TREATMENT, AYBINTIO
     Dates: start: 20230213, end: 20240506
  4. LOVENOX [Concomitant]
     Active Substance: ENOXAPARIN SODIUM
  5. FENOFIBRATE [Concomitant]
     Active Substance: FENOFIBRATE
  6. KARDEGIC [Concomitant]
     Active Substance: ASPIRIN DL-LYSINE
  7. PAROXETINE HYDROCHLORIDE [Concomitant]
     Active Substance: PAROXETINE HYDROCHLORIDE\PAROXETINE HYDROCHLORIDE ANHYDROUS
  8. CYAMEMAZINE [Concomitant]
     Active Substance: CYAMEMAZINE
  9. DIAMICRON [Concomitant]
  10. OLAPARIB [Suspect]
     Active Substance: OLAPARIB
     Indication: Ovarian cancer
     Dosage: LYNPARZA 150 MG, FILM-COATED TABLET, OBSERVANCE ERROR
     Dates: start: 20230214, end: 20230325
  11. OLAPARIB [Suspect]
     Active Substance: OLAPARIB
     Indication: Ovarian cancer
     Dosage: LYNPARZA 150 MG, FILM-COATED TABLET
     Dates: start: 20230325, end: 20240621

REACTIONS (1)
  - Myelodysplastic syndrome [Not Recovered/Not Resolved]

NARRATIVE: CASE EVENT DATE: 20240601
